FAERS Safety Report 4828133-6 (Version None)
Quarter: 2005Q4

REPORT INFORMATION
  Report Type: 
  Country: None (occurrence: None)
  Receive Date: 20051114
  Receipt Date: 20051114
  Transmission Date: 20060501
  Serious: Yes (Hospitalization)
  Sender: FDA-Public Use
  Company Number: None

PATIENT
  Age: 47 Year
  Sex: Male
  Weight: 90.7194 kg

DRUGS (12)
  1. ASPIRIN [Suspect]
     Indication: CORONARY ARTERY DISEASE
     Dosage: 325 MG PO DAILY
     Route: 048
  2. IBUPROFEN [Suspect]
     Indication: PAIN
  3. LIPITOR [Concomitant]
  4. LISINOPRIL [Concomitant]
  5. METFORMIN [Concomitant]
  6. TOPROL-XL [Concomitant]
  7. ASPIRIN [Concomitant]
  8. COD LIVER [Concomitant]
  9. PEPTO BISMOL [Concomitant]
  10. BC [Concomitant]
  11. IBUPROFEN [Concomitant]
  12. CALCIUM GLUCONATE [Concomitant]

REACTIONS (9)
  - ANAEMIA [None]
  - ARTHRALGIA [None]
  - CHEST DISCOMFORT [None]
  - DISCOMFORT [None]
  - DYSPNOEA [None]
  - GASTROINTESTINAL EROSION [None]
  - GASTROINTESTINAL ULCER [None]
  - GROIN PAIN [None]
  - UPPER GASTROINTESTINAL HAEMORRHAGE [None]
